FAERS Safety Report 9424105 (Version 1)
Quarter: 2013Q3

REPORT INFORMATION
  Report Type: Spontaneous
  Country: US (occurrence: US)
  Receive Date: 20130729
  Receipt Date: 20130729
  Transmission Date: 20140515
  Serious: No
  Sender: FDA-Public Use
  Company Number: US-BIOGENIDEC-2013BI069483

PATIENT
  Sex: Female

DRUGS (5)
  1. TYSABRI [Suspect]
     Indication: MULTIPLE SCLEROSIS
     Route: 042
     Dates: start: 20130417
  2. LEXAPRO [Concomitant]
     Dates: start: 2004
  3. XANAX [Concomitant]
     Dates: start: 2004
  4. LAMICTAL [Concomitant]
     Dates: start: 2004
  5. ZOCOR [Concomitant]

REACTIONS (7)
  - Blood triglycerides increased [Recovered/Resolved]
  - Fall [Recovered/Resolved]
  - Mobility decreased [Recovered/Resolved]
  - Muscular weakness [Unknown]
  - Muscle twitching [Recovered/Resolved]
  - Balance disorder [Recovered/Resolved]
  - Dizziness [Recovered/Resolved]
